FAERS Safety Report 5209203-X (Version None)
Quarter: 2007Q1

REPORT INFORMATION
  Report Type: 
  Country: None (occurrence: None)
  Receive Date: 20070116
  Receipt Date: 20070104
  Transmission Date: 20070707
  Serious: Yes (Life-Threatening, Hospitalization)
  Sender: FDA-Public Use
  Company Number: FR-ROCHE-477274

PATIENT
  Age: 58 Year
  Sex: Male
  Weight: 107 kg

DRUGS (15)
  1. VALGANCICLOVIR HCL [Suspect]
     Route: 048
     Dates: start: 20060809, end: 20061002
  2. VALGANCICLOVIR HCL [Suspect]
     Route: 048
     Dates: start: 20061003, end: 20070103
  3. PROGRAF [Concomitant]
     Dates: start: 20060807
  4. CELLCEPT [Concomitant]
     Dates: start: 20060804
  5. SOLUPRED [Concomitant]
     Dates: start: 20060804
  6. MOVICOL [Concomitant]
     Dates: start: 20060804
  7. LASIX [Concomitant]
     Dates: start: 20060823
  8. BACTRIM [Concomitant]
     Dates: start: 20060808
  9. NOVONORM [Concomitant]
  10. GLUCOPHAGE [Concomitant]
     Dates: end: 20060925
  11. VASTEN [Concomitant]
     Dates: start: 20060904
  12. AMLOR [Concomitant]
     Dates: start: 20060925
  13. EUPRESSYL [Concomitant]
     Dates: start: 20061005
  14. ACTOS [Concomitant]
     Dates: start: 20061117
  15. LEXOMIL [Concomitant]
     Dates: start: 20061211

REACTIONS (1)
  - HYPOXIA [None]
